FAERS Safety Report 23428743 (Version 1)
Quarter: 2024Q1

REPORT INFORMATION
  Report Type: Spontaneous
  Country: CA (occurrence: CA)
  Receive Date: 20240122
  Receipt Date: 20240122
  Transmission Date: 20240409
  Serious: Yes (Other)
  Sender: FDA-Public Use
  Company Number: CA-FreseniusKabi-FK202401005

PATIENT
  Age: 11 Year
  Sex: Female

DRUGS (5)
  1. GANCICLOVIR [Suspect]
     Active Substance: GANCICLOVIR
     Indication: Cytomegalovirus viraemia
     Dosage: ROUTE: UNKNOWN
  2. CEPHALEXIN [Suspect]
     Active Substance: CEPHALEXIN
     Indication: Infection prophylaxis
     Dosage: ROUTE: UNKNOWN
  3. IMMUNE GLOBULIN NOS [Suspect]
     Active Substance: IMMUNE GLOBULIN NOS
     Indication: Product used for unknown indication
     Dosage: ROUTE: INTRAVENOUS (NOT OTHERWISE SPECIFIED)
  4. ORENCIA [Suspect]
     Active Substance: ABATACEPT
     Indication: Gene mutation
  5. SIROLIMUS [Suspect]
     Active Substance: SIROLIMUS
     Indication: Gene mutation
     Dosage: 1.3 MG?FORM: NOT SPECIFIED?ROUTE: UNKNOWN

REACTIONS (7)
  - Bronchiectasis [Unknown]
  - Hypokalaemia [Unknown]
  - Immune thrombocytopenia [Unknown]
  - Neutropenia [Unknown]
  - Off label use [Unknown]
  - Product use issue [Unknown]
  - Renal failure [Unknown]
